FAERS Safety Report 16903425 (Version 1)
Quarter: 2019Q4

REPORT INFORMATION
  Report Type: Spontaneous
  Country: US (occurrence: US)
  Receive Date: 20190817
  Receipt Date: 20190817
  Transmission Date: 20200122
  Serious: No
  Sender: FDA-Public Use
  Company Number: None

PATIENT
  Sex: Female

DRUGS (1)
  1. HUMIRA [Suspect]
     Active Substance: ADALIMUMAB
     Indication: RHEUMATOID ARTHRITIS
     Dosage: ?          OTHER DOSE:40 / 0.8 MG/ML;OTHER FREQUENCY:EVERY 14 DAYS;?
     Route: 058
     Dates: start: 20170321

REACTIONS (2)
  - Nasopharyngitis [None]
  - Inappropriate schedule of product administration [None]
